FAERS Safety Report 22026684 (Version 1)
Quarter: 2023Q1

REPORT INFORMATION
  Report Type: Spontaneous
  Country: US (occurrence: None)
  Receive Date: 20230223
  Receipt Date: 20230223
  Transmission Date: 20230418
  Serious: No
  Sender: FDA-Public Use
  Company Number: US-ROCHE-3189600

PATIENT
  Sex: Female

DRUGS (1)
  1. XOLAIR [Suspect]
     Active Substance: OMALIZUMAB
     Indication: Dermatitis atopic
     Dosage: FORM OF ADMIN- VIAL
     Route: 058
     Dates: start: 20220908

REACTIONS (3)
  - Ocular hyperaemia [Unknown]
  - Urticaria [Unknown]
  - Throat tightness [Unknown]
